FAERS Safety Report 11855075 (Version 2)
Quarter: 2015Q4

REPORT INFORMATION
  Report Type: Report from Study
  Country: US (occurrence: US)
  Receive Date: 20151221
  Receipt Date: 20151226
  Transmission Date: 20160305
  Serious: Yes (Other)
  Sender: FDA-Public Use
  Company Number: US-SA-2015SA149925

PATIENT
  Age: 33 Month
  Sex: Female

DRUGS (1)
  1. LUMIZYME [Suspect]
     Active Substance: ALGLUCOSIDASE ALFA
     Indication: GLYCOGEN STORAGE DISEASE TYPE II
     Route: 042
     Dates: start: 20130620

REACTIONS (9)
  - Adenoidectomy [Unknown]
  - Unresponsive to stimuli [Unknown]
  - Malaise [Unknown]
  - Pallor [Unknown]
  - Tonsillectomy [Unknown]
  - Rash [Unknown]
  - Medication error [Unknown]
  - Ear operation [Unknown]
  - Heart rate increased [Unknown]

NARRATIVE: CASE EVENT DATE: 201512
